FAERS Safety Report 9324462 (Version 1)
Quarter: 2013Q2

REPORT INFORMATION
  Report Type: Spontaneous
  Country: US (occurrence: US)
  Receive Date: 20130603
  Receipt Date: 20130603
  Transmission Date: 20140414
  Serious: Yes (Other)
  Sender: FDA-Public Use
  Company Number: US-ABBOTT-13P-163-1092757-00

PATIENT
  Age: 29 Year
  Sex: Male

DRUGS (3)
  1. HUMIRA [Suspect]
     Indication: PSORIASIS
     Dates: start: 2010, end: 2011
  2. STELARA [Suspect]
     Indication: PSORIASIS
     Dates: end: 201208
  3. STELARA [Suspect]
     Dates: start: 201208

REACTIONS (2)
  - Mycosis fungoides [Unknown]
  - Psoriasis [Unknown]
